FAERS Safety Report 4864925-5 (Version None)
Quarter: 2005Q4

REPORT INFORMATION
  Report Type: 
  Country: None (occurrence: None)
  Receive Date: 20051201
  Receipt Date: 20050729
  Transmission Date: 20060501
  Serious: No
  Sender: FDA-Public Use
  Company Number: 2005PV000728

PATIENT
  Age: 35 Year
  Sex: Female
  Weight: 74.8435 kg

DRUGS (8)
  1. BYETTA [Suspect]
     Indication: DIABETES MELLITUS NON-INSULIN-DEPENDENT
     Dosage: 5 MCG; BID; SC
     Route: 058
     Dates: start: 20050711
  2. ZYRTEC [Concomitant]
  3. ACIPHEX [Concomitant]
  4. ADVAIR DISKUS 250/50 [Concomitant]
  5. METFORMIN [Concomitant]
  6. SINGULAIR ^DIECKMANN^ [Concomitant]
  7. VALTREX [Concomitant]
  8. MULTIVITAMIN [Concomitant]

REACTIONS (6)
  - DYSPNOEA [None]
  - INJECTION SITE BRUISING [None]
  - INJECTION SITE INFLAMMATION [None]
  - INJECTION SITE NODULE [None]
  - INJECTION SITE PRURITUS [None]
  - RASH [None]
